FAERS Safety Report 5246243-9 (Version None)
Quarter: 2007Q1

REPORT INFORMATION
  Report Type: 
  Country: None (occurrence: None)
  Receive Date: 20070221
  Receipt Date: 20070207
  Transmission Date: 20070707
  Serious: Yes (Death)
  Sender: FDA-Public Use
  Company Number: GXKR2007NL01562

PATIENT
  Age: 67 Year
  Sex: Female

DRUGS (3)
  1. CYCLOSPORINE [Suspect]
     Indication: IMMUNOSUPPRESSION
     Dosage: 100 50 A,AUG/L
  2. PREDNISOLONE [Suspect]
     Indication: IMMUNOSUPPRESSION
     Dosage: 10 MG/DAY
  3. MYCOPHENOLATE MOFETIL [Suspect]
     Dosage: 1000 MG, BID

REACTIONS (18)
  - ABDOMINAL TENDERNESS [None]
  - ACUTE RESPIRATORY DISTRESS SYNDROME [None]
  - BACTERIAL INFECTION [None]
  - DEPRESSED LEVEL OF CONSCIOUSNESS [None]
  - DIARRHOEA [None]
  - DISSEMINATED INTRAVASCULAR COAGULATION [None]
  - ENCEPHALOPATHY [None]
  - GENERAL PHYSICAL HEALTH DETERIORATION [None]
  - GRANULOCYTOSIS [None]
  - HAEMOGLOBIN DECREASED [None]
  - HEPATIC FAILURE [None]
  - HYPERAMMONAEMIA [None]
  - LYMPHADENOPATHY [None]
  - MYOCARDIAL INFARCTION [None]
  - PALPITATIONS [None]
  - RENAL FAILURE [None]
  - SEPTIC SHOCK [None]
  - SPLENOMEGALY [None]
